FAERS Safety Report 8086934-8 (Version None)
Quarter: 2012Q1

REPORT INFORMATION
  Report Type: 
  Country: None (occurrence: None)
  Receive Date: 20120128
  Receipt Date: 20110517
  Transmission Date: 20120608
  Serious: No
  Sender: FDA-Public Use
  Company Number: US-ABBOTT-11P-163-0727340-00

PATIENT
  Sex: Female
  Weight: 108.96 kg

DRUGS (7)
  1. RIFAMPIN [Suspect]
     Indication: STAPHYLOCOCCAL INFECTION
     Dates: start: 20110505
  2. ATENOLOL [Concomitant]
     Indication: HYPERTENSION
  3. SYNTHROID [Concomitant]
     Indication: HYPOTHYROIDISM
  4. HUMIRA [Suspect]
     Indication: PSORIASIS
     Dates: start: 20101201
  5. NORVASC [Concomitant]
     Indication: HYPERTENSION
  6. SIMVASTATIN [Concomitant]
     Indication: BLOOD CHOLESTEROL INCREASED
  7. ESTROGENIC SUBSTANCE [Concomitant]
     Indication: HORMONE REPLACEMENT THERAPY

REACTIONS (7)
  - STAPHYLOCOCCAL INFECTION [None]
  - SCAB [None]
  - RHINITIS [None]
  - RHINORRHOEA [None]
  - NAUSEA [None]
  - EPISTAXIS [None]
  - NASAL ULCER [None]
